FAERS Safety Report 7204238-X (Version None)
Quarter: 2010Q4

REPORT INFORMATION
  Report Type: 
  Country: None (occurrence: None)
  Receive Date: 20101230
  Receipt Date: 20101224
  Transmission Date: 20110411
  Serious: Yes (Life-Threatening, Hospitalization, Other)
  Sender: FDA-Public Use
  Company Number: JP-ROCHE-747541

PATIENT
  Sex: Male
  Weight: 53.2 kg

DRUGS (22)
  1. TOCILIZUMAB [Suspect]
     Indication: RHEUMATOID ARTHRITIS
     Route: 065
     Dates: start: 20100317
  2. TOCILIZUMAB [Suspect]
     Route: 065
     Dates: start: 20100818
  3. TOCILIZUMAB [Suspect]
     Route: 065
     Dates: start: 20100915
  4. TOCILIZUMAB [Suspect]
     Route: 065
     Dates: start: 20101013
  5. TOCILIZUMAB [Suspect]
     Route: 065
     Dates: start: 20101117
  6. OCRELIZUMAB [Suspect]
     Indication: RHEUMATOID ARTHRITIS
     Route: 042
     Dates: start: 20090827, end: 20090910
  7. OCRELIZUMAB [Suspect]
     Route: 042
     Dates: start: 20080925
  8. OCRELIZUMAB [Suspect]
     Route: 042
     Dates: start: 20081009
  9. OCRELIZUMAB [Suspect]
     Route: 042
     Dates: start: 20090312
  10. OCRELIZUMAB [Suspect]
     Route: 042
     Dates: start: 20090326
  11. METHOTREXATE [Suspect]
     Route: 065
     Dates: start: 20080705
  12. PREDNISOLONE [Suspect]
     Route: 065
     Dates: start: 20101108
  13. FOLIC ACID [Concomitant]
     Dates: start: 20070320
  14. METFORMIN HYDROCHLORIDE [Concomitant]
     Dates: start: 20070612
  15. VOGLIBOSE [Concomitant]
     Dates: start: 20070612
  16. PROPIVERINE HYDROCHLORIDE [Concomitant]
  17. DONEPEZIL HYDROCHLORIDE [Concomitant]
     Dates: start: 20081120
  18. OLMESARTAN MEDOXOMIL [Concomitant]
     Dates: start: 20090114
  19. OMEPRAZOLE [Concomitant]
  20. CARBOCISTEINE [Concomitant]
     Dates: start: 20100421
  21. YOKUKANSAN [Concomitant]
     Dates: start: 20100915
  22. LOXOPROFEN SODIUM [Concomitant]
     Dosage: FREQUENCY: AS NEEDED
     Dates: start: 20080311

REACTIONS (5)
  - DUODENAL POLYP [None]
  - GASTRITIS [None]
  - GASTROINTESTINAL PERFORATION [None]
  - LARGE INTESTINE CARCINOMA [None]
  - PERITONITIS [None]
